FAERS Safety Report 8963787 (Version 1)
Quarter: 2012Q4

REPORT INFORMATION
  Report Type: 
  Country: AU (occurrence: AU)
  Receive Date: 20121214
  Receipt Date: 20121214
  Transmission Date: 20130627
  Serious: No
  Sender: FDA-Public Use
  Company Number: PHHY2012AU115050

PATIENT
  Sex: Male

DRUGS (11)
  1. TASIGNA [Suspect]
     Indication: CHRONIC MYELOID LEUKAEMIA
     Dosage: 600 mg, QD
     Route: 048
     Dates: start: 201208
  2. PRAZOSIN [Concomitant]
  3. OLMETEC [Concomitant]
  4. FRUSEMIDE [Concomitant]
  5. EFFEXOR [Concomitant]
  6. ZYLOPRIM [Concomitant]
  7. GABAPENTIN [Concomitant]
  8. MOBIC [Concomitant]
  9. NEXIUM 1-2-3 [Concomitant]
  10. KAPANOL [Concomitant]
  11. PULMICORT [Concomitant]

REACTIONS (1)
  - Pruritus [Unknown]
